FAERS Safety Report 10666576 (Version 1)
Quarter: 2014Q4

REPORT INFORMATION
  Report Type: Other
  Country: IT (occurrence: IT)
  Receive Date: 20141221
  Receipt Date: 20141221
  Transmission Date: 20150529
  Serious: Yes (Other)
  Sender: FDA-Public Use
  Company Number: IT-MYLANLABS-2014M1013711

PATIENT

DRUGS (3)
  1. FLUOROURACIL. [Concomitant]
     Active Substance: FLUOROURACIL
     Indication: PRODUCT USED FOR UNKNOWN INDICATION
  2. CALCIUM LEVOFOLINATE [Concomitant]
     Active Substance: LEVOLEUCOVORIN CALCIUM
     Indication: PRODUCT USED FOR UNKNOWN INDICATION
  3. OXALIPLATIN. [Suspect]
     Active Substance: OXALIPLATIN
     Indication: ADENOCARCINOMA OF COLON
     Dosage: 85 MG/M2, CYCLE
     Route: 042
     Dates: start: 20131201, end: 20140430

REACTIONS (2)
  - Interstitial lung disease [Recovered/Resolved]
  - Haematotoxicity [Unknown]

NARRATIVE: CASE EVENT DATE: 20140529
